FAERS Safety Report 21084702 (Version 1)
Quarter: 2022Q3

REPORT INFORMATION
  Report Type: Report from Study
  Country: NL (occurrence: NL)
  Receive Date: 20220714
  Receipt Date: 20220714
  Transmission Date: 20221027
  Serious: Yes (Life-Threatening)
  Sender: FDA-Public Use
  Company Number: NL-REGENERON PHARMACEUTICALS, INC.-2022-091028

PATIENT
  Age: 73 Year
  Sex: Female

DRUGS (3)
  1. CEMIPLIMAB [Suspect]
     Active Substance: CEMIPLIMAB
     Indication: Pancreatic carcinoma metastatic
     Dosage: 350 MG, Q3W
     Route: 042
     Dates: start: 20220523
  2. FIANLIMAB [Suspect]
     Active Substance: FIANLIMAB
     Indication: Pancreatic carcinoma metastatic
     Dosage: 20 MG TRACER ONCE ADMINISTERED
     Route: 042
  3. INVESTIGATIONAL PRODUCT [Suspect]
     Active Substance: INVESTIGATIONAL PRODUCT
     Indication: Pancreatic carcinoma metastatic
     Dosage: 20 MG TRACER ONCE ADMINISTERED
     Route: 042

REACTIONS (1)
  - Immune-mediated hepatitis [Unknown]

NARRATIVE: CASE EVENT DATE: 20220711
